FAERS Safety Report 11453892 (Version 12)
Quarter: 2016Q2

REPORT INFORMATION
  Report Type: Report from Study
  Country: BR (occurrence: BR)
  Receive Date: 20150903
  Receipt Date: 20160613
  Transmission Date: 20160815
  Serious: Yes (Hospitalization, Other)
  Sender: FDA-Public Use
  Company Number: PHHY2015BR105974

PATIENT
  Sex: Male
  Weight: 79 kg

DRUGS (4)
  1. EXJADE [Suspect]
     Active Substance: DEFERASIROX
     Indication: MYELODYSPLASTIC SYNDROME
     Dosage: 1 DF, UNK (1 TABLET OF 500 MG)
     Route: 048
     Dates: start: 2013
  2. EXJADE [Suspect]
     Active Substance: DEFERASIROX
     Dosage: 17 MG/KG, QD (2 TABLETS OF 500 MG DAILY)
     Route: 048
     Dates: start: 201401
  3. EPOETIN ALFA [Concomitant]
     Active Substance: ERYTHROPOIETIN
     Indication: ASTHENIA
     Dosage: 1 DF, QW3 (1 VIAL EVERY MONDAY, WEDNESDAY AND FRIDAY)
     Route: 058
     Dates: start: 201501
  4. DOXAZOSIN MESYLATE. [Concomitant]
     Active Substance: DOXAZOSIN MESYLATE
     Indication: PROPHYLAXIS
     Dosage: 1 DF, QD
     Route: 048

REACTIONS (26)
  - Haemorrhage [Unknown]
  - Diarrhoea [Unknown]
  - Platelet count decreased [Unknown]
  - Pneumonia [Not Recovered/Not Resolved]
  - Histoplasmosis [Not Recovered/Not Resolved]
  - Decreased appetite [Not Recovered/Not Resolved]
  - Weight decreased [Not Recovered/Not Resolved]
  - Red blood cell count decreased [Unknown]
  - Pain [Not Recovered/Not Resolved]
  - Peripheral swelling [Not Recovered/Not Resolved]
  - Hypersomnia [Not Recovered/Not Resolved]
  - Fat tissue decreased [Unknown]
  - Erythema [Unknown]
  - Ascites [Not Recovered/Not Resolved]
  - Depressed mood [Not Recovered/Not Resolved]
  - Bone pain [Not Recovered/Not Resolved]
  - Muscular weakness [Unknown]
  - Abasia [Unknown]
  - Haematocrit decreased [Recovering/Resolving]
  - Dysuria [Unknown]
  - Gait disturbance [Not Recovered/Not Resolved]
  - Hyperphagia [Not Recovered/Not Resolved]
  - Asthenia [Not Recovered/Not Resolved]
  - Presyncope [Unknown]
  - Iron deficiency [Unknown]
  - Dysstasia [Not Recovered/Not Resolved]

NARRATIVE: CASE EVENT DATE: 2014
